FAERS Safety Report 11146911 (Version 1)
Quarter: 2015Q2

REPORT INFORMATION
  Report Type: Spontaneous
  Country: US (occurrence: US)
  Receive Date: 20150528
  Receipt Date: 20150528
  Transmission Date: 20150821
  Serious: Yes (Congenital Anomaly)
  Sender: FDA-Public Use
  Company Number: US-ELI_LILLY_AND_COMPANY-US201504008193

PATIENT

DRUGS (8)
  1. FERROUS SULFATE [Concomitant]
     Active Substance: FERROUS SULFATE\FERROUS SULFATE, DRIED
     Route: 064
  2. TERAZOL                            /00685102/ [Concomitant]
     Route: 064
  3. PROZAC [Suspect]
     Active Substance: FLUOXETINE HYDROCHLORIDE
     Indication: PRODUCT USED FOR UNKNOWN INDICATION
     Dosage: 1 DF, UNKNOWN
     Route: 064
  4. TERBUTALINE [Concomitant]
     Active Substance: TERBUTALINE
     Route: 064
  5. FLAGYL [Concomitant]
     Active Substance: METRONIDAZOLE\METRONIDAZOLE HYDROCHLORIDE
     Route: 064
  6. MAGNESIUM SULFATE. [Concomitant]
     Active Substance: MAGNESIUM SULFATE
     Route: 064
  7. CELESTONE [Concomitant]
     Active Substance: BETAMETHASONE
     Route: 064
  8. PRENAT PLUS [Concomitant]
     Route: 064

REACTIONS (7)
  - Limb deformity [Unknown]
  - Meningomyelocele [Unknown]
  - Premature baby [Unknown]
  - Foetal exposure during pregnancy [Recovered/Resolved]
  - Cauda equina syndrome [Unknown]
  - Arnold-Chiari malformation [Unknown]
  - Talipes [Unknown]
